FAERS Safety Report 8496052 (Version 5)
Quarter: 2022Q4

REPORT INFORMATION
  Report Type: Spontaneous
  Country: DE (occurrence: DE)
  Receive Date: 20080311
  Receipt Date: 20221012
  Transmission Date: 20230112
  Serious: Yes (Life-Threatening, Hospitalization, Other)
  Sender: FDA-Public Use
  Company Number: DE-RANBAXY-2008US-13321

PATIENT
  Age: 62 Year
  Sex: Male

DRUGS (55)
  1. ISOPTIN SR [Suspect]
     Active Substance: VERAPAMIL HYDROCHLORIDE
     Indication: Atrial fibrillation
     Dosage: 80 MG, BID
     Route: 048
     Dates: start: 20050709
  2. ACETYLCYSTEINE [Suspect]
     Active Substance: ACETYLCYSTEINE
     Indication: Mucosal disorder
     Dosage: 300 MG, BID
     Route: 048
     Dates: start: 20050629, end: 20050712
  3. ACETYLCYSTEINE [Suspect]
     Active Substance: ACETYLCYSTEINE
     Indication: Evidence based treatment
     Dosage: 600 MG, QD
     Route: 048
     Dates: start: 20050629, end: 20050712
  4. RAMIPRIL [Suspect]
     Active Substance: RAMIPRIL
     Indication: Coronary artery disease
     Dosage: 1 IN 1 D
     Route: 048
     Dates: start: 20050630, end: 20050702
  5. MOXIFLOXACIN HYDROCHLORIDE [Suspect]
     Active Substance: MOXIFLOXACIN HYDROCHLORIDE
     Indication: Chronic obstructive pulmonary disease
     Dosage: 400 MG, QD
     Route: 048
     Dates: start: 20050627, end: 20050703
  6. MOXIFLOXACIN HYDROCHLORIDE [Suspect]
     Active Substance: MOXIFLOXACIN HYDROCHLORIDE
     Indication: Infection
  7. CLOMETHIAZOLE [Suspect]
     Active Substance: CLOMETHIAZOLE
     Indication: Alcohol withdrawal syndrome
     Dosage: 2 DOSAGE FORMS, 3 IN 1 D
     Route: 048
     Dates: start: 20050630, end: 20050703
  8. CALCIUM CHLORIDE\POTASSIUM CHLORIDE\SODIUM CHLORIDE [Suspect]
     Active Substance: CALCIUM CHLORIDE\POTASSIUM CHLORIDE\SODIUM CHLORIDE
     Indication: Fluid replacement
     Dosage: 1000 ML, QD
     Route: 042
     Dates: start: 20050627, end: 20050703
  9. CALCIUM CHLORIDE\POTASSIUM CHLORIDE\SODIUM CHLORIDE [Suspect]
     Active Substance: CALCIUM CHLORIDE\POTASSIUM CHLORIDE\SODIUM CHLORIDE
     Indication: Volume blood increased
  10. CLONIDINE [Suspect]
     Active Substance: CLONIDINE
     Indication: Alcohol withdrawal syndrome
     Dosage: 1.5 MG, QD
     Route: 042
     Dates: start: 20050628, end: 20050630
  11. CLONIDINE [Suspect]
     Active Substance: CLONIDINE
     Dosage: 1.5 MG, QD
     Route: 042
     Dates: start: 20050703, end: 20050704
  12. CLORAZEPATE DIPOTASSIUM [Suspect]
     Active Substance: CLORAZEPATE DIPOTASSIUM
     Indication: Sedation
     Dosage: 5 MG, TID + 10MG AT NIGHT
     Route: 048
     Dates: start: 20050627, end: 20050702
  13. CLORAZEPATE DIPOTASSIUM [Suspect]
     Active Substance: CLORAZEPATE DIPOTASSIUM
     Dosage: 5 MG, TID + 10 MG AT NIGHT
     Route: 048
     Dates: start: 20050705, end: 20050705
  14. HEPARIN [Suspect]
     Active Substance: HEPARIN SODIUM
     Indication: Prophylaxis
     Dosage: 25000 IU, UNK
     Route: 058
     Dates: start: 20050627, end: 20050709
  15. BRICANYL [Suspect]
     Active Substance: TERBUTALINE SULFATE
     Indication: Dyspnoea
     Dosage: 1 AMPOULE, UNK
     Route: 058
     Dates: start: 20050627, end: 20050709
  16. BECLOMETHASONE DIPROPIONATE [Suspect]
     Active Substance: BECLOMETHASONE DIPROPIONATE
     Indication: Chronic obstructive pulmonary disease
     Dosage: 2 IN 1 D
     Route: 050
     Dates: start: 20050627, end: 20050715
  17. FORADIL [Suspect]
     Active Substance: FORMOTEROL FUMARATE
     Indication: Chronic obstructive pulmonary disease
     Dosage: 2 IN 1 D
     Route: 050
     Dates: start: 20050629, end: 20050718
  18. POTASSIUM CARBONATE\POTASSIUM CITRATE [Suspect]
     Active Substance: POTASSIUM CARBONATE\POTASSIUM CITRATE
     Indication: Hypokalaemia
     Dosage: 1 IN 1 D
     Route: 048
     Dates: start: 20050704, end: 20050714
  19. PANTOZOL [Suspect]
     Active Substance: PANTOPRAZOLE SODIUM
     Indication: Prophylaxis
     Dosage: 40 MG, QD
     Route: 048
     Dates: start: 20050703, end: 20050718
  20. PANTOZOL [Suspect]
     Active Substance: PANTOPRAZOLE SODIUM
     Dosage: UNK
     Route: 048
     Dates: start: 20050629, end: 20050630
  21. THEOPHYLLINE ANHYDROUS [Suspect]
     Active Substance: THEOPHYLLINE ANHYDROUS
     Indication: Chronic obstructive pulmonary disease
     Dosage: 600 MG, QD
     Route: 048
     Dates: start: 20050703, end: 20050709
  22. THEOPHYLLINE ANHYDROUS [Suspect]
     Active Substance: THEOPHYLLINE ANHYDROUS
     Dosage: 600 MG, UNK
  23. THEOPHYLLINE ANHYDROUS [Suspect]
     Active Substance: THEOPHYLLINE ANHYDROUS
     Dosage: 200 MG - 600 MG
     Route: 042
     Dates: start: 20050627, end: 20050630
  24. THEOPHYLLINE ANHYDROUS [Suspect]
     Active Substance: THEOPHYLLINE ANHYDROUS
     Dosage: 200 MG, UNK
     Route: 042
     Dates: start: 20050718, end: 20050718
  25. THEOPHYLLINE ANHYDROUS [Suspect]
     Active Substance: THEOPHYLLINE ANHYDROUS
     Dosage: 200 MG, UNK
     Route: 042
     Dates: start: 20050721, end: 20050721
  26. BEROTEC [Suspect]
     Active Substance: FENOTEROL HYDROBROMIDE
     Indication: Chronic obstructive pulmonary disease
     Dosage: 2-3 TIMES, WEEKLY
     Route: 050
     Dates: start: 20040601
  27. SPIRIVA [Suspect]
     Active Substance: TIOTROPIUM BROMIDE MONOHYDRATE
     Indication: Chronic obstructive pulmonary disease
     Dosage: 1 IN 1 D
     Route: 050
     Dates: start: 20040601
  28. PREDNISOLONE [Suspect]
     Active Substance: PREDNISOLONE
     Indication: Chronic obstructive pulmonary disease
     Dosage: 20 MG, QD
     Route: 048
     Dates: start: 20050719
  29. PREDNISOLONE [Suspect]
     Active Substance: PREDNISOLONE
     Dosage: 50 MG, QD
     Route: 048
     Dates: start: 20050628, end: 20050705
  30. PREDNISOLONE [Suspect]
     Active Substance: PREDNISOLONE
     Dosage: 80 MG, QD
     Route: 048
     Dates: start: 20050707, end: 20050715
  31. PREDNISOLONE [Suspect]
     Active Substance: PREDNISOLONE
     Dosage: 5 MG, UNK
     Route: 048
  32. PREDNISOLONE [Suspect]
     Active Substance: PREDNISOLONE
     Dosage: 15 MG, QD
     Route: 048
     Dates: start: 20050716, end: 20050718
  33. PREDNISOLONE [Suspect]
     Active Substance: PREDNISOLONE
     Dosage: 100 MG, QD
     Route: 048
     Dates: start: 20050721, end: 20050721
  34. AMBROXOL [Suspect]
     Active Substance: AMBROXOL
     Indication: Mucosal disorder
     Dosage: 14 GTT, BID
     Route: 048
     Dates: start: 20050701, end: 20050718
  35. AMBROXOL [Suspect]
     Active Substance: AMBROXOL
     Indication: Evidence based treatment
  36. NITROGLYCERIN [Suspect]
     Active Substance: NITROGLYCERIN
     Indication: Hypertension
     Dosage: 50 MG, UNK
     Route: 042
     Dates: start: 20050702, end: 20050702
  37. FRUCTOSE\INSULIN BEEF [Suspect]
     Active Substance: FRUCTOSE\INSULIN BEEF
     Indication: Blood glucose
     Dosage: UNK
     Route: 058
     Dates: start: 20050703, end: 20050703
  38. HYDROCHLOROTHIAZIDE\RAMIPRIL [Suspect]
     Active Substance: HYDROCHLOROTHIAZIDE\RAMIPRIL
     Indication: Cardiac disorder
     Dosage: UNK
     Route: 048
  39. NORVASC [Suspect]
     Active Substance: AMLODIPINE BESYLATE
     Indication: Cardiac disorder
     Dosage: 5 MG, QD
     Route: 048
     Dates: start: 20050704, end: 20050709
  40. FUROSEMIDE [Suspect]
     Active Substance: FUROSEMIDE
     Indication: Hypertension
     Dosage: 40 MG, QD
     Route: 048
     Dates: start: 20050707
  41. OXAZEPAM [Suspect]
     Active Substance: OXAZEPAM
     Indication: Sedation
     Dosage: UNK
     Route: 048
     Dates: start: 20050708, end: 20050708
  42. DIGITOXIN [Suspect]
     Active Substance: DIGITOXIN
     Indication: Cardiac disorder
     Dosage: 0.1 MG, QD
     Route: 048
     Dates: start: 20050708
  43. MARCUMAR [Suspect]
     Active Substance: PHENPROCOUMON
     Indication: Atrial fibrillation
     Dosage: UNK
     Route: 048
     Dates: start: 20050710
  44. CALCIUM [Suspect]
     Active Substance: CALCIUM
     Indication: Osteoporosis
     Dosage: 500 MG, BID
     Route: 048
     Dates: start: 20050715, end: 20050718
  45. PREDNISOLONE [Suspect]
     Active Substance: PREDNISOLONE
     Indication: Chronic obstructive pulmonary disease
     Dosage: 15 MG, QD
     Route: 048
     Dates: start: 20050716, end: 20050718
  46. PREDNISOLONE [Suspect]
     Active Substance: PREDNISOLONE
     Dosage: 100 MG, QD
     Route: 048
     Dates: start: 20050721, end: 20050721
  47. CHOLECALCIFEROL [Suspect]
     Active Substance: CHOLECALCIFEROL
     Indication: Osteoporosis
     Dosage: 1000 IU, QD
     Route: 048
     Dates: start: 20050718, end: 20050718
  48. FLUTICASONE PROPIONATE\SALMETEROL XINAFOATE [Suspect]
     Active Substance: FLUTICASONE PROPIONATE\SALMETEROL XINAFOATE
     Indication: Chronic obstructive pulmonary disease
     Dosage: UNK
     Route: 050
  49. VERAPAMIL HYDROCHLORIDE [Suspect]
     Active Substance: VERAPAMIL HYDROCHLORIDE
     Indication: Tachyarrhythmia
     Dosage: 80 MG-240MG, DAILY
     Route: 048
     Dates: start: 20050718
  50. VERAPAMIL HYDROCHLORIDE [Suspect]
     Active Substance: VERAPAMIL HYDROCHLORIDE
     Dosage: 80 MG, TID
     Route: 048
  51. OMEPRAZOLE [Suspect]
     Active Substance: OMEPRAZOLE
     Indication: Gastric disorder
     Dosage: 20 MG, ONCE IN EVENING
     Route: 048
     Dates: start: 20050719
  52. OSTEOPLUS BT [Suspect]
     Active Substance: CALCIUM CARBONATE\CHOLECALCIFEROL
     Indication: Osteoporosis
     Dosage: 2 IN 1 D
     Route: 048
     Dates: start: 20050719
  53. HYDROCHLOROTHIAZIDE\RAMIPRIL [Suspect]
     Active Substance: HYDROCHLOROTHIAZIDE\RAMIPRIL
     Indication: Coronary artery disease
     Dosage: 5/25 DAILY
     Route: 048
     Dates: start: 20050703
  54. HALOPERIDOL [Concomitant]
     Active Substance: HALOPERIDOL
     Indication: Sedation
     Dosage: 10 GTT, QD
     Route: 048
     Dates: start: 20050629, end: 20050630
  55. HALOPERIDOL [Concomitant]
     Active Substance: HALOPERIDOL
     Dosage: 10 GTT, QD
     Route: 048
     Dates: start: 20050703, end: 20050703

REACTIONS (6)
  - Stevens-Johnson syndrome [Recovered/Resolved]
  - Toxic epidermal necrolysis [Recovered/Resolved]
  - Nikolsky^s sign [Unknown]
  - Pruritus [Unknown]
  - Blister [Unknown]
  - Pyrexia [Unknown]

NARRATIVE: CASE EVENT DATE: 20050721
